FAERS Safety Report 10061775 (Version 1)
Quarter: 2014Q2

REPORT INFORMATION
  Report Type: Spontaneous
  Country: ES (occurrence: None)
  Receive Date: 20140403
  Receipt Date: 20140403
  Transmission Date: 20141212
  Serious: Yes (Hospitalization)
  Sender: FDA-Public Use
  Company Number: AUR-APL-2014-04059

PATIENT
  Age: 43 Year
  Sex: Male

DRUGS (3)
  1. SIMVASTATIN [Suspect]
     Indication: PRODUCT USED FOR UNKNOWN INDICATION
  2. AMLODIPINE W/OLMESARTAN (AMLODIPINE W/ OLMESARTAN) [Concomitant]
  3. ALLOPURINOL (ALLOPURINOL) [Concomitant]

REACTIONS (1)
  - Toxic skin eruption [None]
